FAERS Safety Report 8504388-1 (Version None)
Quarter: 2012Q3

REPORT INFORMATION
  Report Type: 
  Country: None (occurrence: None)
  Receive Date: 20120711
  Receipt Date: 20120709
  Transmission Date: 20120928
  Serious: No
  Sender: FDA-Public Use
  Company Number: US-PFIZER INC-2012141646

PATIENT
  Sex: Female
  Weight: 73.923 kg

DRUGS (4)
  1. ACCUPRIL [Suspect]
     Indication: HYPERTENSION
     Dosage: 20 MG, 2X/DAY
     Route: 048
     Dates: start: 20010101
  2. NEURONTIN [Suspect]
     Indication: SURGERY
     Dosage: TWO 300MG ORAL CAPSULES AT A TIME TO TAKE TOTAL DOSE OF 600MG, 3X/DAY
     Route: 048
     Dates: start: 20010101
  3. XANAX [Concomitant]
     Dosage: UNK
  4. LIPITOR [Suspect]
     Indication: BLOOD CHOLESTEROL INCREASED
     Dosage: 40 MG, 1X/DAY
     Route: 048
     Dates: start: 20010101

REACTIONS (1)
  - MUSCULAR WEAKNESS [None]
